FAERS Safety Report 10101791 (Version 1)
Quarter: 2014Q2

REPORT INFORMATION
  Report Type: Spontaneous
  Country: None (occurrence: None)
  Receive Date: 20140422
  Receipt Date: 20140422
  Transmission Date: 20141212
  Serious: Yes (Hospitalization)
  Sender: FDA-Public Use
  Company Number: 2014P1003170

PATIENT
  Age: 22 Year
  Sex: Male

DRUGS (2)
  1. SULFAMETHOXAZOLE AND TRIMETHOPRIM [Suspect]
     Indication: DERMATITIS PAPILLARIS CAPILLITII
  2. SULFAMETHOXAZOLE AND TRIMETHOPRIM [Suspect]

REACTIONS (4)
  - Hypersensitivity vasculitis [None]
  - Scar [None]
  - Skin hyperpigmentation [None]
  - Oedema peripheral [None]
